FAERS Safety Report 16378932 (Version 4)
Quarter: 2020Q3

REPORT INFORMATION
  Report Type: Spontaneous
  Country: US (occurrence: US)
  Receive Date: 20190531
  Receipt Date: 20200724
  Transmission Date: 20201102
  Serious: Yes (Other)
  Sender: FDA-Public Use
  Company Number: US-SA-2019SA150027

PATIENT

DRUGS (2)
  1. PYRIDIUM [Concomitant]
     Active Substance: PHENAZOPYRIDINE
     Dosage: UNK
     Route: 065
  2. DUPIXENT [Suspect]
     Active Substance: DUPILUMAB
     Indication: DERMATITIS ATOPIC
     Dosage: 300 MG, QOW
     Route: 058
     Dates: start: 20190116, end: 2020

REACTIONS (6)
  - Chromaturia [Not Recovered/Not Resolved]
  - Cystitis [Not Recovered/Not Resolved]
  - COVID-19 [Recovering/Resolving]
  - Dysuria [Not Recovered/Not Resolved]
  - Vertigo [Recovered/Resolved]
  - Pollakiuria [Not Recovered/Not Resolved]

NARRATIVE: CASE EVENT DATE: 20190511
